FAERS Safety Report 11702806 (Version 1)
Quarter: 2015Q4

REPORT INFORMATION
  Report Type: Spontaneous
  Country: US (occurrence: US)
  Receive Date: 20151105
  Receipt Date: 20151105
  Transmission Date: 20160304
  Serious: No
  Sender: FDA-Public Use
  Company Number: US-ENDO PHARMACEUTICALS INC.-2015-003162

PATIENT
  Age: 31 Year
  Sex: Male
  Weight: 59.02 kg

DRUGS (1)
  1. MORPHINE SULFATE ER 15MG [Suspect]
     Active Substance: MORPHINE SULFATE
     Indication: BACK PAIN
     Route: 048
     Dates: start: 20150928

REACTIONS (7)
  - Palpitations [Not Recovered/Not Resolved]
  - Drug ineffective [Unknown]
  - Product solubility abnormal [None]
  - Product physical issue [Unknown]
  - Chills [Not Recovered/Not Resolved]
  - Hyperhidrosis [Not Recovered/Not Resolved]
  - Anxiety [Not Recovered/Not Resolved]

NARRATIVE: CASE EVENT DATE: 20150928
